FAERS Safety Report 4527688-9 (Version None)
Quarter: 2004Q4

REPORT INFORMATION
  Report Type: 
  Country: None (occurrence: None)
  Receive Date: 20041215
  Receipt Date: 20041208
  Transmission Date: 20050328
  Serious: Yes (Death)
  Sender: FDA-Public Use
  Company Number: NO-MERCK-0412NOR00018

PATIENT
  Age: 79 Year
  Sex: Female

DRUGS (6)
  1. VIOXX [Suspect]
     Indication: OSTEOARTHRITIS
     Route: 048
     Dates: start: 20011130
  2. VIOXX [Suspect]
     Route: 048
     Dates: start: 20020226
  3. LEVOMEPROMAZINE [Concomitant]
     Route: 048
  4. HYDROCHLOROTHIAZIDE AND IRBESARTAN [Concomitant]
     Indication: HYPERTENSION
     Route: 048
     Dates: start: 20020101
  5. ATENOLOL [Concomitant]
     Indication: HYPERTENSION
     Route: 048
  6. METFORMIN HYDROCHLORIDE [Concomitant]
     Indication: DIABETES MELLITUS
     Route: 048
     Dates: start: 19990101

REACTIONS (2)
  - CHEST PAIN [None]
  - SUDDEN DEATH [None]
